APPROVED DRUG PRODUCT: TEMOZOLOMIDE
Active Ingredient: TEMOZOLOMIDE
Strength: 140MG
Dosage Form/Route: CAPSULE;ORAL
Application: A201742 | Product #004 | TE Code: AB
Applicant: SUN PHARMACEUTICAL INDUSTRIES LTD
Approved: Feb 12, 2014 | RLD: No | RS: No | Type: RX